FAERS Safety Report 25092100 (Version 1)
Quarter: 2025Q1

REPORT INFORMATION
  Report Type: Spontaneous
  Country: CN (occurrence: CN)
  Receive Date: 20250319
  Receipt Date: 20250319
  Transmission Date: 20250409
  Serious: Yes (Other)
  Sender: PFIZER
  Company Number: CN-PFIZER INC-202500056935

PATIENT
  Sex: Female

DRUGS (2)
  1. LORBRENA [Suspect]
     Active Substance: LORLATINIB
     Dosage: 75 MG, QD
     Route: 048
     Dates: start: 2024
  2. LORBRENA [Suspect]
     Active Substance: LORLATINIB
     Dosage: 50 MG, QD
     Route: 048

REACTIONS (3)
  - Carcinoembryonic antigen increased [Unknown]
  - White blood cell count decreased [Unknown]
  - Platelet count decreased [Unknown]
